FAERS Safety Report 11940409 (Version 1)
Quarter: 2016Q1

REPORT INFORMATION
  Report Type: Spontaneous
  Country: US (occurrence: US)
  Receive Date: 20160122
  Receipt Date: 20160122
  Transmission Date: 20160526
  Serious: No
  Sender: FDA-Public Use
  Company Number: US-DYAX CORP.-2015DX000237

PATIENT
  Age: 34 Year
  Sex: Female
  Weight: 143.01 kg

DRUGS (3)
  1. KALBITOR [Suspect]
     Active Substance: ECALLANTIDE
     Indication: HEREDITARY ANGIOEDEMA
     Route: 058
     Dates: start: 20150512, end: 20150512
  2. KALBITOR [Suspect]
     Active Substance: ECALLANTIDE
     Route: 058
  3. XOLAIR [Concomitant]
     Active Substance: OMALIZUMAB
     Indication: PRODUCT USED FOR UNKNOWN INDICATION
     Route: 065

REACTIONS (5)
  - Blood pressure increased [Recovered/Resolved]
  - Migraine [Recovered/Resolved]
  - Blood pressure decreased [Recovered/Resolved]
  - Asthma [Recovered/Resolved]
  - Inner ear disorder [Not Recovered/Not Resolved]

NARRATIVE: CASE EVENT DATE: 20150511
